FAERS Safety Report 15001757 (Version 2)
Quarter: 2018Q2

REPORT INFORMATION
  Report Type: Spontaneous
  Country: ZA (occurrence: ZA)
  Receive Date: 20180612
  Receipt Date: 20180618
  Transmission Date: 20180711
  Serious: Yes (Death)
  Sender: FDA-Public Use
  Company Number: ZA-JNJFOC-20180610304

PATIENT
  Age: 18 Year

DRUGS (1)
  1. NEUCON (METHYLPHENIDATE HYDROCHLORIDE) [Suspect]
     Active Substance: METHYLPHENIDATE HYDROCHLORIDE
     Indication: PRODUCT USED FOR UNKNOWN INDICATION
     Route: 065

REACTIONS (2)
  - Drug ineffective [Unknown]
  - Completed suicide [Fatal]
